FAERS Safety Report 10815272 (Version 1)
Quarter: 2015Q1

REPORT INFORMATION
  Report Type: Spontaneous
  Country: US (occurrence: US)
  Receive Date: 20150218
  Receipt Date: 20150218
  Transmission Date: 20150721
  Serious: Yes (Hospitalization, Other)
  Sender: FDA-Public Use
  Company Number: US-RECKITT BENCKISER PHARMACEUTICAL, INC-RB-075757-2015

PATIENT
  Age: 64 Year
  Sex: Male

DRUGS (4)
  1. SUBOXONE [Suspect]
     Active Substance: BUPRENORPHINE HYDROCHLORIDE\NALOXONE HYDROCHLORIDE
     Indication: DRUG DEPENDENCE
     Dosage: 16 MG, DAILY
     Route: 060
     Dates: start: 2011
  2. SUBOXONE [Suspect]
     Active Substance: BUPRENORPHINE HYDROCHLORIDE\NALOXONE HYDROCHLORIDE
     Dosage: 12 MG, DAILY
     Route: 060
     Dates: end: 201302
  3. HIGH CHOLESTEROL MEDICATION [Concomitant]
     Active Substance: UNSPECIFIED INGREDIENT
     Indication: BLOOD CHOLESTEROL INCREASED
     Dosage: UNK, DAILY
     Route: 048
  4. HIGH BLOOD PRESSURE MEDICATION [Concomitant]
     Active Substance: UNSPECIFIED INGREDIENT
     Indication: HYPERTENSION
     Dosage: UNK, DAILY
     Route: 048

REACTIONS (4)
  - Contusion [Recovered/Resolved]
  - Accident at work [Recovered/Resolved]
  - Pulmonary contusion [Recovered/Resolved]
  - Pulmonary haemorrhage [Recovered/Resolved]

NARRATIVE: CASE EVENT DATE: 201302
